FAERS Safety Report 8383189 (Version 4)
Quarter: 2012Q4

REPORT INFORMATION
  Report Type: 
  Country: GB (occurrence: GB)
  Receive Date: 20120130
  Receipt Date: 20121111
  Transmission Date: 20130627
  Serious: Yes (Death, Other)
  Sender: FDA-Public Use
  Company Number: PHFR2012GB000873

PATIENT
  Age: 47 None
  Sex: Female

DRUGS (1)
  1. CLOZARIL [Suspect]
     Indication: SCHIZOPHRENIA
     Route: 048
     Dates: start: 20010701

REACTIONS (14)
  - Death [Fatal]
  - Fall [Unknown]
  - Acute left ventricular failure [Unknown]
  - Arteriosclerosis coronary artery [Unknown]
  - Pulmonary oedema [Unknown]
  - Antipsychotic drug level increased [Unknown]
  - Circulatory collapse [Unknown]
  - Nasopharyngitis [Unknown]
  - Thermal burn [Unknown]
  - Scar [Unknown]
  - Excoriation [Unknown]
  - Skin discolouration [Unknown]
  - Pulmonary congestion [Unknown]
  - Malaise [Not Recovered/Not Resolved]
